FAERS Safety Report 23570043 (Version 1)
Quarter: 2024Q1

REPORT INFORMATION
  Report Type: Report from Study
  Country: US (occurrence: US)
  Receive Date: 20240227
  Receipt Date: 20240227
  Transmission Date: 20240410
  Serious: No
  Sender: FDA-Public Use
  Company Number: US-BIOVITRUM-2024-US-002758

PATIENT
  Age: 22 Year
  Sex: Male

DRUGS (1)
  1. KINERET [Suspect]
     Active Substance: ANAKINRA
     Indication: Connective tissue disorder
     Dosage: 100MG DAILY
     Route: 058
     Dates: start: 20231003

REACTIONS (1)
  - Adverse drug reaction [Unknown]
